FAERS Safety Report 5189382-3 (Version None)
Quarter: 2006Q4

REPORT INFORMATION
  Report Type: 
  Country: None (occurrence: None)
  Receive Date: 20061215
  Receipt Date: 20061201
  Transmission Date: 20070319
  Serious: Yes (Hospitalization)
  Sender: FDA-Public Use
  Company Number: AZAFR200600426

PATIENT
  Age: 65 Year
  Sex: Male

DRUGS (3)
  1. VIDAZA [Suspect]
     Indication: MYELODYSPLASTIC SYNDROME
     Dosage: 75 MG/M2 (DAILY X 6 DAYS), SUBCUTANEOUS
     Route: 058
     Dates: start: 20060414, end: 20060420
  2. DANATROL                                (DANAZOL) [Concomitant]
  3. ARANESP [Concomitant]

REACTIONS (7)
  - BONE MARROW FAILURE [None]
  - BONE MARROW TRANSPLANT [None]
  - BRONCHOPULMONARY ASPERGILLOSIS [None]
  - CONDITION AGGRAVATED [None]
  - DRUG INEFFECTIVE [None]
  - FEBRILE BONE MARROW APLASIA [None]
  - PANCYTOPENIA [None]
